FAERS Safety Report 8847418 (Version 1)
Quarter: 2012Q4

REPORT INFORMATION
  Report Type: 
  Country: US (occurrence: US)
  Receive Date: 20121018
  Receipt Date: 20121018
  Transmission Date: 20130627
  Serious: Yes (Hospitalization)
  Sender: FDA-Public Use
  Company Number: US-B.I. PHARMACEUTICALS,INC./RIDGEFIELD-2012-BP-25439BP

PATIENT
  Age: 71 Year
  Sex: Male

DRUGS (3)
  1. PRADAXA [Suspect]
     Indication: CEREBROVASCULAR ACCIDENT PROPHYLAXIS
     Dosage: 300 mg
     Route: 048
     Dates: start: 20120505
  2. PRADAXA [Suspect]
     Indication: ATRIAL FIBRILLATION
  3. ASPRIRIN [Concomitant]
     Indication: PROPHYLAXIS
     Dosage: 81 mg
     Route: 048

REACTIONS (2)
  - Haematochezia [Recovered/Resolved]
  - Arteriovenous malformation [Recovered/Resolved]
